FAERS Safety Report 20219641 (Version 1)
Quarter: 2021Q4

REPORT INFORMATION
  Report Type: Spontaneous
  Country: US (occurrence: None)
  Receive Date: 20211221
  Receipt Date: 20211221
  Transmission Date: 20220303
  Serious: No
  Sender: FDA-Public Use
  Company Number: None

PATIENT
  Sex: Female

DRUGS (1)
  1. HYDROQUINONE [Suspect]
     Active Substance: HYDROQUINONE
     Indication: Skin hyperpigmentation
     Dates: start: 20211219, end: 20211220

REACTIONS (5)
  - Skin burning sensation [None]
  - Erythema [None]
  - Product quality issue [None]
  - Manufacturing production issue [None]
  - Inappropriate release of product for distribution [None]

NARRATIVE: CASE EVENT DATE: 20211219
